FAERS Safety Report 22659254 (Version 2)
Quarter: 2024Q3

REPORT INFORMATION
  Report Type: Spontaneous
  Country: US (occurrence: US)
  Receive Date: 20230630
  Receipt Date: 20240828
  Transmission Date: 20241016
  Serious: No
  Sender: MERCK
  Company Number: US-009507513-2306USA001249

PATIENT
  Sex: Female

DRUGS (9)
  1. KEYTRUDA [Suspect]
     Active Substance: PEMBROLIZUMAB
     Indication: Clear cell renal cell carcinoma
     Dosage: 200 MILLIGRAM EVERY 3 WEEKS; CYCLE 1
     Route: 042
     Dates: start: 20230321, end: 20230321
  2. KEYTRUDA [Suspect]
     Active Substance: PEMBROLIZUMAB
     Dosage: 200 MILLIGRAM EVERY 3 WEEKS; CYCLE 2
     Route: 042
     Dates: start: 20230411, end: 20230411
  3. KEYTRUDA [Suspect]
     Active Substance: PEMBROLIZUMAB
     Dosage: 200 MILLIGRAM EVERY 3 WEEKS; CYCLE 3
     Route: 042
     Dates: start: 20230502, end: 20230502
  4. INLYTA [Suspect]
     Active Substance: AXITINIB
     Indication: Clear cell renal cell carcinoma
     Dosage: TAKE 1 TABLET (5MG) BY MOUTH EVERY 12 HOURS. USE WITH 1 MG TABLETS FOR A TOTAL OF 7 MG TWICE A DAY
     Route: 048
     Dates: start: 20230310
  5. INLYTA [Suspect]
     Active Substance: AXITINIB
     Dosage: TAKE 2 TABLETS (2MG) BY MOUTH EVERY 12 HOURS. USE WITH 5 MG FOR A TOTAL OF 7 MG TWICE A DAY
     Route: 048
     Dates: start: 20230310
  6. NORVASC [Concomitant]
     Active Substance: AMLODIPINE BESYLATE
     Dosage: 10 MILLIGRAM, BID
  7. LOSARTAN POTASSIUM [Concomitant]
     Active Substance: LOSARTAN POTASSIUM
     Dosage: 100 MILLIGRAM, QD
  8. IMDEVIMAB [Concomitant]
     Active Substance: IMDEVIMAB
     Indication: COVID-19 treatment
     Dosage: UNK
     Dates: start: 20210820
  9. CASIRIVIMAB [Concomitant]
     Active Substance: CASIRIVIMAB
     Indication: COVID-19 treatment
     Dosage: UNK
     Dates: start: 20210820

REACTIONS (3)
  - Chest pain [Unknown]
  - Hypertension [Recovering/Resolving]
  - Drug hypersensitivity [Unknown]

NARRATIVE: CASE EVENT DATE: 20230101
